FAERS Safety Report 11075970 (Version 2)
Quarter: 2015Q2

REPORT INFORMATION
  Report Type: Spontaneous
  Country: TR (occurrence: TR)
  Receive Date: 20150429
  Receipt Date: 20150430
  Transmission Date: 20150821
  Serious: Yes (Death, Hospitalization)
  Sender: FDA-Public Use
  Company Number: TR-TEVA-556299ISR

PATIENT
  Age: 85 Year
  Sex: Male

DRUGS (1)
  1. AZILECT [Suspect]
     Active Substance: RASAGILINE MESYLATE
     Indication: PARKINSON^S DISEASE
     Route: 048
     Dates: start: 2006

REACTIONS (8)
  - Small intestinal obstruction [Fatal]
  - Respiratory arrest [Fatal]
  - Gastrointestinal oedema [Unknown]
  - Hyponatraemia [Fatal]
  - Cardiac arrest [Fatal]
  - Overdose [Unknown]
  - Dyspepsia [Unknown]
  - Malaise [Unknown]

NARRATIVE: CASE EVENT DATE: 20150411
